FAERS Safety Report 10633460 (Version 2)
Quarter: 2014Q4

REPORT INFORMATION
  Report Type: Spontaneous
  Country: US (occurrence: US)
  Receive Date: 20141205
  Receipt Date: 20141205
  Transmission Date: 20150529
  Serious: Yes (Other)
  Sender: FDA-Public Use
  Company Number: CHPA2011US06017

PATIENT
  Sex: Male

DRUGS (3)
  1. VOLTAREN [Suspect]
     Active Substance: DICLOFENAC SODIUM
     Indication: OFF LABEL USE
  2. VOLTAREN [Suspect]
     Active Substance: DICLOFENAC SODIUM
     Indication: BACK PAIN
     Dosage: JUST A LITTLE BIT
     Route: 061
  3. ANTIHYPERTENSIVE DRUGS [Concomitant]
     Active Substance: UNSPECIFIED INGREDIENT
     Indication: BLOOD PRESSURE
     Route: 065

REACTIONS (6)
  - Fall [Recovering/Resolving]
  - Neck pain [Recovering/Resolving]
  - Drug administered at inappropriate site [Unknown]
  - Musculoskeletal pain [Recovering/Resolving]
  - Concussion [Recovering/Resolving]
  - Constipation [Not Recovered/Not Resolved]
